FAERS Safety Report 17946991 (Version 1)
Quarter: 2020Q2

REPORT INFORMATION
  Report Type: Spontaneous
  Country: GB (occurrence: GB)
  Receive Date: 20200625
  Receipt Date: 20200625
  Transmission Date: 20200714
  Serious: Yes (Other)
  Sender: FDA-Public Use
  Company Number: GB-PERRIGO-20GB008742

PATIENT
  Age: 68 Year
  Sex: Female

DRUGS (9)
  1. ROCURONIUM [Suspect]
     Active Substance: ROCURONIUM BROMIDE
     Indication: AORTIC ANEURYSM REPAIR
     Dosage: SKIN TEST
     Route: 065
  2. PROPOFOL. [Suspect]
     Active Substance: PROPOFOL
     Indication: AORTIC ANEURYSM REPAIR
     Dosage: SURGERY
     Route: 065
  3. NORZOL 40MG/ML PL00427/0068 [Suspect]
     Active Substance: METRONIDAZOLE BENZOATE
     Indication: AORTIC ANEURYSM REPAIR
     Dosage: UNK
     Route: 065
  4. GENTAMYCIN                         /00047101/ [Suspect]
     Active Substance: GENTAMICIN
     Indication: AORTIC ANEURYSM REPAIR
     Dosage: SKIN TEST
     Route: 065
  5. POVIDONE-IODINE. [Suspect]
     Active Substance: POVIDONE-IODINE
     Indication: AORTIC ANEURYSM REPAIR
     Dosage: SURGERY
     Route: 061
  6. CISATRACURIUM. [Suspect]
     Active Substance: CISATRACURIUM
     Indication: SKIN TEST
     Dosage: UNK
     Route: 065
  7. CHLORHEXIDINE [Suspect]
     Active Substance: CHLORHEXIDINE
     Indication: AORTIC ANEURYSM REPAIR
     Dosage: UNK
     Route: 061
  8. FENTANYL. [Suspect]
     Active Substance: FENTANYL
     Indication: AORTIC ANEURYSM REPAIR
     Dosage: UNK
     Route: 065
  9. ATRACURIUM [Suspect]
     Active Substance: ATRACURIUM
     Indication: SKIN TEST
     Dosage: UNK
     Route: 065

REACTIONS (2)
  - Skin test positive [Unknown]
  - Anaphylactic reaction [Recovered/Resolved]
